FAERS Safety Report 8831432 (Version 1)
Quarter: 2012Q4

REPORT INFORMATION
  Report Type: 
  Country: FR (occurrence: FR)
  Receive Date: 20121009
  Receipt Date: 20121009
  Transmission Date: 20130627
  Serious: Yes (Death)
  Sender: FDA-Public Use
  Company Number: FR-ROCHE-1138014

PATIENT
  Age: 70 Year
  Sex: Male

DRUGS (5)
  1. AVASTIN [Suspect]
     Indication: PRODUCT USED FOR UNKNOWN INDICATION
     Route: 042
     Dates: end: 20120723
  2. CARBOPLATIN [Suspect]
     Indication: PRODUCT USED FOR UNKNOWN INDICATION
     Route: 042
     Dates: end: 20120723
  3. ALIMTA [Suspect]
     Indication: PRODUCT USED FOR UNKNOWN INDICATION
     Route: 042
     Dates: end: 20120723
  4. SKENAN [Concomitant]
     Route: 048
     Dates: end: 20120803
  5. ACTISKENAN [Concomitant]
     Route: 048
     Dates: end: 20120803

REACTIONS (1)
  - Encephalopathy [Fatal]
